FAERS Safety Report 10175277 (Version 1)
Quarter: 2014Q2

REPORT INFORMATION
  Report Type: Spontaneous
  Country: US (occurrence: US)
  Receive Date: 20140515
  Receipt Date: 20140515
  Transmission Date: 20141212
  Serious: No
  Sender: FDA-Public Use
  Company Number: US-VIVUS-2014V1000196

PATIENT
  Sex: Female
  Weight: 71.73 kg

DRUGS (8)
  1. QSYMIA 3.75MG/23MG [Suspect]
     Indication: WEIGHT DECREASED
     Route: 048
     Dates: start: 201403
  2. ARMOUR THYROID [Concomitant]
     Indication: HYPOTHYROIDISM
  3. CYMBALTA [Concomitant]
     Indication: FIBROMYALGIA
     Dosage: SEVERAL YEARS
  4. CYMBALTA [Concomitant]
     Indication: DEPRESSION
  5. OXYCONTIN [Concomitant]
     Indication: PAIN
  6. XODOL [Concomitant]
     Indication: BREAKTHROUGH PAIN
     Dosage: 10MG/300MG IN BETWEEN DOSES OF OXYCONTIN
  7. IMITREX [Concomitant]
     Indication: MIGRAINE
     Dosage: SINCE 1990^S
  8. ALPRAZOLAM [Concomitant]
     Indication: SLEEP DISORDER
     Dosage: 3-4 YEARS

REACTIONS (5)
  - Migraine [Recovering/Resolving]
  - Vomiting [Recovered/Resolved]
  - Fatigue [Recovering/Resolving]
  - Nausea [Recovering/Resolving]
  - Drug dose omission [Unknown]
